FAERS Safety Report 15996313 (Version 1)
Quarter: 2019Q1

REPORT INFORMATION
  Report Type: Spontaneous
  Country: US (occurrence: US)
  Receive Date: 20190222
  Receipt Date: 20190222
  Transmission Date: 20190418
  Serious: Yes (Other)
  Sender: FDA-Public Use
  Company Number: None

PATIENT
  Age: 50 Year
  Sex: Female
  Weight: 49.5 kg

DRUGS (1)
  1. CANDESARTAN TABS 4MG [Suspect]
     Active Substance: CANDESARTAN
     Indication: MIGRAINE
     Dosage: ?          QUANTITY:2 TABLET(S);?
     Route: 048
     Dates: start: 20171115, end: 20181220

REACTIONS (1)
  - Tinnitus [None]

NARRATIVE: CASE EVENT DATE: 20171115
